FAERS Safety Report 9227735 (Version 1)
Quarter: 2013Q1

REPORT INFORMATION
  Report Type: Spontaneous
  Country: US (occurrence: None)
  Receive Date: 20121012
  Receipt Date: 20121012
  Transmission Date: 20140127
  Serious: Yes (Other)
  Sender: FDA-Public Use
  Company Number: 1000024785

PATIENT
  Age: 63 Year
  Sex: Female

DRUGS (1)
  1. ESCITALOPRAM OXALATE [Suspect]
     Indication: DEPRESSION

REACTIONS (4)
  - Suicidal ideation [None]
  - Depression [None]
  - Crying [None]
  - Insomnia [None]
